FAERS Safety Report 15725667 (Version 1)
Quarter: 2018Q4

REPORT INFORMATION
  Report Type: Spontaneous
  Country: FI (occurrence: FI)
  Receive Date: 20181215
  Receipt Date: 20181215
  Transmission Date: 20190205
  Serious: Yes (Hospitalization)
  Sender: FDA-Public Use
  Company Number: FI-TEVA-2018-FI-986301

PATIENT
  Age: 23 Year
  Sex: Male

DRUGS (3)
  1. DISTRANEURIN [Concomitant]
     Active Substance: CLOMETHIAZOLE
     Indication: INSOMNIA
     Dosage: AS NECESSARY
     Route: 048
     Dates: start: 20181016
  2. LEMILVO [Suspect]
     Active Substance: ARIPIPRAZOLE
     Indication: SCHIZOPHRENIA
     Dosage: 30 MILLIGRAM DAILY;
     Route: 048
     Dates: start: 20181016, end: 20181109
  3. LEVOMEPROMAZINE ORION [Concomitant]
     Indication: RESTLESSNESS
     Dosage: AS NECESSARY
     Route: 048
     Dates: start: 20181016

REACTIONS (3)
  - Akathisia [Not Recovered/Not Resolved]
  - Poor quality sleep [Not Recovered/Not Resolved]
  - Restlessness [Not Recovered/Not Resolved]

NARRATIVE: CASE EVENT DATE: 20181018
